FAERS Safety Report 17769529 (Version 8)
Quarter: 2020Q4

REPORT INFORMATION
  Report Type: Report from Study
  Country: CA (occurrence: CA)
  Receive Date: 20200512
  Receipt Date: 20201015
  Transmission Date: 20210113
  Serious: Yes (Hospitalization, Other)
  Sender: FDA-Public Use
  Company Number: NVSC2020CA121877

PATIENT
  Age: 18 Year
  Sex: Female
  Weight: 71.6 kg

DRUGS (24)
  1. LAMICTAL [Concomitant]
     Active Substance: LAMOTRIGINE
     Indication: SEIZURE
     Dosage: 150 MG, BID
     Route: 048
     Dates: start: 20150308
  2. HYDROCORTISONE. [Suspect]
     Active Substance: HYDROCORTISONE
     Dosage: 80 MG, ONCE/SINGLE
     Route: 042
     Dates: start: 20200513, end: 20200513
  3. HYDROCORTISONE. [Suspect]
     Active Substance: HYDROCORTISONE
     Dosage: 10 MG, Q6H
     Route: 042
     Dates: start: 20200515, end: 20200519
  4. ALESSE 28 [Concomitant]
     Active Substance: ETHINYL ESTRADIOL\LEVONORGESTREL
     Indication: PRODUCT USED FOR UNKNOWN INDICATION
     Dosage: UNK
     Route: 065
     Dates: start: 20180323
  5. SYNTHROID [Concomitant]
     Active Substance: LEVOTHYROXINE SODIUM
     Dosage: UNK
     Route: 048
     Dates: start: 20200515
  6. DESOXIMETASONE. [Concomitant]
     Active Substance: DESOXIMETASONE
     Indication: PRODUCT USED FOR UNKNOWN INDICATION
     Dosage: UNK
     Route: 065
     Dates: start: 20200318
  7. TRAMETINIB [Suspect]
     Active Substance: TRAMETINIB
     Indication: GLIOMA
     Dosage: 1.5 MG, QD
     Route: 048
     Dates: start: 20200316, end: 20200318
  8. HYDROCORTISONE. [Suspect]
     Active Substance: HYDROCORTISONE
     Dosage: 10 MG, Q8H
     Route: 042
     Dates: start: 20200519, end: 20200520
  9. CLOBAZAM. [Concomitant]
     Active Substance: CLOBAZAM
     Indication: SEIZURE
     Dosage: 5 MG AM/ 15 MG HS
     Route: 048
     Dates: start: 20191105
  10. SYNTHROID [Concomitant]
     Active Substance: LEVOTHYROXINE SODIUM
     Indication: HYPOPITUITARISM
     Dosage: 125 MG
     Route: 048
     Dates: start: 20130326, end: 20200514
  11. TRAMETINIB [Suspect]
     Active Substance: TRAMETINIB
     Dosage: 0.75 MG, QD
     Route: 048
     Dates: start: 20200414, end: 20200428
  12. HYDROCORTISONE. [Suspect]
     Active Substance: HYDROCORTISONE
     Indication: HYPOPITUITARISM
     Dosage: 5 MG AM/ 10 MG HS
     Route: 042
     Dates: start: 20180326
  13. DESMOPRESSIN [Concomitant]
     Active Substance: DESMOPRESSIN
     Indication: DIABETES INSIPIDUS
     Dosage: 100 UG, HS
     Route: 048
     Dates: start: 20191217
  14. DESMOPRESSIN [Concomitant]
     Active Substance: DESMOPRESSIN
     Dosage: FROM 100 UG TO 50 UG, DIE HS
     Route: 048
     Dates: start: 20200515
  15. TRAMETINIB [Suspect]
     Active Substance: TRAMETINIB
     Indication: NEUROFIBROMA
     Dosage: 1.5 MG, QD
     Route: 048
     Dates: start: 20200217
  16. HYDROCORTISONE. [Suspect]
     Active Substance: HYDROCORTISONE
     Dosage: 15 MG, Q6H
     Route: 042
     Dates: start: 20200514, end: 20200515
  17. LAMOTRIGINE. [Suspect]
     Active Substance: LAMOTRIGINE
     Indication: SEIZURE
     Dosage: 150 MG, BID
     Route: 065
     Dates: start: 20150308
  18. ESTROGEN [Suspect]
     Active Substance: ESTROGENS
     Indication: HYPOPITUITARISM
     Dosage: 1 PATCH 9-7 DAYS
     Route: 065
     Dates: start: 20200313
  19. LAX-A-DAY [Concomitant]
     Active Substance: POLYETHYLENE GLYCOL 3350
     Indication: CONSTIPATION
     Dosage: 17 ON DIC PRN
     Route: 048
     Dates: start: 20191107
  20. ONDANSETRON [Concomitant]
     Active Substance: ONDANSETRON
     Indication: PRODUCT USED FOR UNKNOWN INDICATION
     Dosage: UNK
     Route: 065
     Dates: start: 20200204
  21. LEVOTHYROXINE. [Concomitant]
     Active Substance: LEVOTHYROXINE
     Indication: PRODUCT USED FOR UNKNOWN INDICATION
     Dosage: UNK
     Route: 065
     Dates: start: 20180326
  22. DOXYCYCLINE. [Concomitant]
     Active Substance: DOXYCYCLINE
     Indication: RASH MACULO-PAPULAR
     Dosage: 100 MG, 92 DAYS
     Route: 048
     Dates: start: 20200321
  23. HYDRALAZINE [Concomitant]
     Active Substance: HYDRALAZINE HYDROCHLORIDE
     Indication: HYPERTENSION
     Dosage: 5 MG, PRN
     Route: 042
     Dates: start: 20200516, end: 20200516
  24. TRAMETINIB [Suspect]
     Active Substance: TRAMETINIB
     Dosage: 1.5 MG, QD
     Route: 048
     Dates: start: 20200408, end: 20200412

REACTIONS (6)
  - Intentional product misuse [Recovered/Resolved]
  - Pancreatitis [Recovering/Resolving]
  - Anaemia [Recovering/Resolving]
  - C-reactive protein increased [Unknown]
  - Lipase increased [Recovering/Resolving]
  - Urinary tract infection [Recovered/Resolved]

NARRATIVE: CASE EVENT DATE: 20200408
